FAERS Safety Report 4937172-6 (Version None)
Quarter: 2006Q1

REPORT INFORMATION
  Report Type: 
  Country: None (occurrence: None)
  Receive Date: 20060307
  Receipt Date: 20060307
  Transmission Date: 20060701
  Serious: Yes (Hospitalization)
  Sender: FDA-Public Use
  Company Number: None

PATIENT
  Age: 62 Year
  Sex: Female
  Weight: 65.9 kg

DRUGS (7)
  1. OLANZAPINE [Suspect]
     Indication: AGITATION
     Dosage: 5MG X1 IM, 9-16-05, 0100 HR;1 X DOSE
     Route: 030
     Dates: start: 20050916
  2. OLANZAPINE [Suspect]
     Indication: AGITATION
     Dosage: 5MG X1 IM, 9-16-05 0030HR; 1 X DOSE
     Route: 030
     Dates: start: 20050916
  3. QUETIAPINE [Concomitant]
  4. TRAMADOL HCL [Concomitant]
  5. SERTRALINE [Concomitant]
  6. DIVALPROEX DR [Concomitant]
  7. OLANZAPINE [Concomitant]

REACTIONS (3)
  - APNOEA [None]
  - GRAND MAL CONVULSION [None]
  - PULSE ABSENT [None]
